FAERS Safety Report 14180120 (Version 1)
Quarter: 2017Q4

REPORT INFORMATION
  Report Type: Spontaneous
  Country: US (occurrence: US)
  Receive Date: 20171110
  Receipt Date: 20171110
  Transmission Date: 20180321
  Serious: No
  Sender: FDA-Public Use
  Company Number: US-BAYER-2017-215759

PATIENT
  Age: 29 Year
  Sex: Female

DRUGS (1)
  1. MIRENA [Suspect]
     Active Substance: LEVONORGESTREL
     Indication: CONTRACEPTION
     Dosage: 20 MCG/24HR, CONT
     Route: 015
     Dates: start: 20150728, end: 20161101

REACTIONS (5)
  - Vaginal haemorrhage [None]
  - Medical device site pain [None]
  - Vaginal discharge [None]
  - Complication associated with device [None]
  - Headache [None]

NARRATIVE: CASE EVENT DATE: 20161101
